FAERS Safety Report 15591873 (Version 1)
Quarter: 2018Q4

REPORT INFORMATION
  Report Type: Spontaneous
  Country: US (occurrence: US)
  Receive Date: 20181106
  Receipt Date: 20181106
  Transmission Date: 20190205
  Serious: No
  Sender: FDA-Public Use
  Company Number: US-PERRIGO-18US009401

PATIENT
  Age: 91 Year
  Sex: Female
  Weight: 58.96 kg

DRUGS (1)
  1. ESTRADIOL. [Suspect]
     Active Substance: ESTRADIOL
     Indication: VULVOVAGINAL PRURITUS
     Dosage: 1 GM, QHS
     Route: 067
     Dates: start: 20180903, end: 20180906

REACTIONS (3)
  - Asthenia [Recovered/Resolved]
  - Gait disturbance [Recovered/Resolved]
  - Off label use [Recovered/Resolved]

NARRATIVE: CASE EVENT DATE: 20180903
